FAERS Safety Report 5008988-5 (Version None)
Quarter: 2006Q2

REPORT INFORMATION
  Report Type: 
  Country: None (occurrence: None)
  Receive Date: 20060523
  Receipt Date: 20060516
  Transmission Date: 20061013
  Serious: Yes (Hospitalization, Congenital Anomaly)
  Sender: FDA-Public Use
  Company Number: FR-SANOFI-SYNTHELABO-A02200601282

PATIENT
  Age: 1 Day
  Sex: Male
  Weight: 2.9 kg

DRUGS (2)
  1. STILNOX [Suspect]
     Indication: SLEEP DISORDER
     Dosage: 20 MG
     Route: 064
     Dates: end: 20060204
  2. XANAX [Suspect]
     Indication: ANXIOUS PARENT
     Dosage: UNSPECIFIED DAILY DOSE. DOSE REGIMEN DECREASE NOS BY THE END OF THE PREGNACY
     Route: 064
     Dates: end: 20060204

REACTIONS (2)
  - DRUG EXPOSURE DURING PREGNANCY [None]
  - GASTROOESOPHAGEAL REFLUX DISEASE [None]
